FAERS Safety Report 11631781 (Version 1)
Quarter: 2015Q4

REPORT INFORMATION
  Report Type: Spontaneous
  Country: US (occurrence: US)
  Receive Date: 20151015
  Receipt Date: 20151015
  Transmission Date: 20160304
  Serious: No
  Sender: FDA-Public Use
  Company Number: US-GLENMARK PHARMACEUTICALS INC, USA.-2015GMK015366

PATIENT
  Age: 52 Year
  Sex: Female

DRUGS (3)
  1. TIAGABINE [Concomitant]
     Active Substance: TIAGABINE
     Indication: PRURITUS
     Dosage: 2 MG, UNK
  2. LEVETIRACETAM. [Suspect]
     Active Substance: LEVETIRACETAM
     Indication: PRURITUS
     Dosage: UNK
  3. GABAPENTIN. [Suspect]
     Active Substance: GABAPENTIN
     Indication: PRURITUS
     Dosage: UNK

REACTIONS (2)
  - Therapeutic response unexpected [Unknown]
  - Off label use [Unknown]
